FAERS Safety Report 7973080-4 (Version None)
Quarter: 2011Q4

REPORT INFORMATION
  Report Type: 
  Country: None (occurrence: None)
  Receive Date: 20111213
  Receipt Date: 20111205
  Transmission Date: 20120403
  Serious: No
  Sender: FDA-Public Use
  Company Number: US-B.I. PHARMACEUTICALS,INC./RIDGEFIELD-2011-BP-24968BP

PATIENT
  Sex: Female

DRUGS (24)
  1. FENTANYL [Concomitant]
     Indication: STIFF-MAN SYNDROME
  2. FLEXERIL [Concomitant]
     Indication: STIFF-MAN SYNDROME
  3. VALIUM [Concomitant]
     Indication: MUSCLE SPASMS
     Dosage: 60 MG
     Route: 048
  4. VALIUM [Concomitant]
     Indication: STIFF-MAN SYNDROME
  5. COUMADIN [Concomitant]
     Indication: COAGULOPATHY
     Route: 048
     Dates: end: 20110201
  6. BACLOFEN [Concomitant]
     Indication: MUSCLE SPASMS
     Dosage: 160 MG
     Route: 048
  7. XOPENEX [Concomitant]
     Indication: ASTHMA
     Route: 055
  8. PRADAXA [Suspect]
     Indication: THROMBOSIS
     Dosage: 300 MG
     Route: 048
     Dates: start: 20101001
  9. FENTANYL [Concomitant]
     Indication: PAIN IN EXTREMITY
     Route: 061
  10. FLEXERIL [Concomitant]
     Indication: MUSCLE SPASMS
     Dosage: 30 MG
     Route: 048
  11. ZOFRAN [Concomitant]
     Indication: EPIGASTRIC DISCOMFORT
     Dosage: 12 MG
     Route: 048
  12. BACLOFEN [Concomitant]
     Indication: COMPLEX REGIONAL PAIN SYNDROME
  13. BACLOFEN [Concomitant]
     Indication: STIFF-MAN SYNDROME
  14. DILAUDID [Concomitant]
     Indication: PAIN IN EXTREMITY
     Dosage: 8 MG
     Route: 048
  15. DILAUDID [Concomitant]
     Indication: COMPLEX REGIONAL PAIN SYNDROME
  16. PULMICORT [Concomitant]
     Indication: ASTHMA
  17. FLEXERIL [Concomitant]
     Indication: COMPLEX REGIONAL PAIN SYNDROME
  18. VALIUM [Concomitant]
     Indication: COMPLEX REGIONAL PAIN SYNDROME
  19. PRADAXA [Suspect]
     Indication: COAGULOPATHY
  20. NEURONTIN [Concomitant]
     Indication: NEURALGIA
     Dosage: 3600 MG
     Route: 048
  21. FENTANYL [Concomitant]
     Indication: COMPLEX REGIONAL PAIN SYNDROME
  22. DILAUDID [Concomitant]
     Indication: STIFF-MAN SYNDROME
  23. PRILOSEC [Concomitant]
     Route: 048
  24. BUDESONIDE [Concomitant]
     Indication: ASTHMA
     Route: 055

REACTIONS (2)
  - GASTRITIS [None]
  - ABDOMINAL PAIN UPPER [None]
